FAERS Safety Report 5035171-X (Version None)
Quarter: 2006Q2

REPORT INFORMATION
  Report Type: 
  Country: None (occurrence: None)
  Receive Date: 20060519
  Receipt Date: 20060410
  Transmission Date: 20061013
  Serious: Yes (Hospitalization)
  Sender: FDA-Public Use
  Company Number: 06P-163-0330376-00

PATIENT
  Age: 43 Year
  Sex: Female
  Weight: 74.3 kg

DRUGS (11)
  1. KALETRA [Suspect]
     Indication: HIV INFECTION
     Dosage: 1 TABLET, 2 IN 1 D, ORAL
     Route: 048
     Dates: start: 20060221, end: 20060310
  2. BLINDED THERAPY [Suspect]
     Indication: HIV INFECTION
     Dosage: 2 IN 1 D, ORAL
     Route: 048
     Dates: start: 20060221, end: 20060310
  3. BLINDED THERAPY [Suspect]
     Indication: HIV INFECTION
     Dosage: 2 IN 1 D, ORAL
     Route: 048
     Dates: start: 20060314
  4. ZIDOVUDINE [Concomitant]
  5. TRUVADA [Concomitant]
  6. FUZEON [Concomitant]
  7. SETRALINE HCL [Concomitant]
  8. TRAZODONE HCL [Concomitant]
  9. RISPERIDONE [Concomitant]
  10. DAPSONE [Concomitant]
  11. PRAVASTATIN [Concomitant]

REACTIONS (4)
  - BLOOD BILIRUBIN INCREASED [None]
  - HEPATOMEGALY [None]
  - NAUSEA [None]
  - ORTHOSTATIC HYPOTENSION [None]
